FAERS Safety Report 6921958-2 (Version None)
Quarter: 2010Q3

REPORT INFORMATION
  Report Type: 
  Country: None (occurrence: None)
  Receive Date: 20100812
  Receipt Date: 20100805
  Transmission Date: 20110219
  Serious: Yes (Congenital Anomaly)
  Sender: FDA-Public Use
  Company Number: AR-B.I. PHARMACEUTICALS,INC./RIDGEFIELD-2010-BP-08483BP

PATIENT
  Sex: Male
  Weight: 2.9 kg

DRUGS (9)
  1. VIRAMUNE [Suspect]
     Indication: DRUG EXPOSURE DURING PREGNANCY
     Route: 064
     Dates: start: 20031112, end: 20031125
  2. VIRAMUNE [Suspect]
     Route: 064
     Dates: start: 20031126, end: 20040121
  3. VIRAMUNE [Suspect]
     Route: 064
     Dates: start: 20040124, end: 20040212
  4. METRONIDAZOLE [Concomitant]
     Indication: DRUG EXPOSURE DURING PREGNANCY
     Route: 064
  5. VIDEX [Concomitant]
     Indication: DRUG EXPOSURE DURING PREGNANCY
     Route: 064
     Dates: start: 20040122, end: 20040123
  6. COMBIVIR [Concomitant]
     Indication: DRUG EXPOSURE DURING PREGNANCY
     Route: 064
     Dates: start: 20031112, end: 20040121
  7. COMBIVIR [Concomitant]
     Route: 064
     Dates: start: 20040124, end: 20040214
  8. EPIVIR [Concomitant]
     Indication: DRUG EXPOSURE DURING PREGNANCY
     Route: 064
     Dates: start: 20040122, end: 20040123
  9. KALETRA [Concomitant]
     Indication: DRUG EXPOSURE DURING PREGNANCY
     Route: 064
     Dates: start: 20040122, end: 20040123

REACTIONS (2)
  - APLASIA CUTIS CONGENITA [None]
  - UMBILICAL HERNIA [None]
